FAERS Safety Report 18865804 (Version 2)
Quarter: 2021Q2

REPORT INFORMATION
  Report Type: Spontaneous
  Country: US (occurrence: US)
  Receive Date: 20210208
  Receipt Date: 20210423
  Transmission Date: 20210717
  Serious: No
  Sender: FDA-Public Use
  Company Number: US-PFIZER INC-2020350060

PATIENT
  Age: 55 Year
  Sex: Female

DRUGS (1)
  1. XELJANZ XR [Suspect]
     Active Substance: TOFACITINIB CITRATE
     Indication: POLYARTHRITIS
     Dosage: 11 MG, 1X/DAY (1 TABLET BY MOUTH ONCE DAILY)
     Route: 048

REACTIONS (3)
  - Product dose omission in error [Unknown]
  - Off label use [Unknown]
  - Somnolence [Unknown]
